FAERS Safety Report 10442229 (Version 1)
Quarter: 2014Q2

REPORT INFORMATION
  Report Type: Spontaneous
  Country: US (occurrence: None)
  Receive Date: 20140616
  Receipt Date: 20140616
  Transmission Date: 20141212
  Serious: Yes (Hospitalization, Other)
  Sender: FDA-Public Use
  Company Number: 2013-001490

PATIENT
  Age: 73 Year
  Sex: Female

DRUGS (25)
  1. ACTONEL (RISEDRONATE SODIUM) TABLET, 35MG [Suspect]
     Indication: OSTEOPOROSIS
     Route: 048
     Dates: start: 20040824, end: 20100220
  2. ACTONEL (RISEDRONATE SODIUM) TABLET, 35MG [Suspect]
     Indication: OSTEOPENIA
     Route: 048
     Dates: start: 20040824, end: 20100220
  3. ACTONEL (RISEDRONATE SODIUM) TABLET, 35MG [Suspect]
     Indication: OSTEOPOROSIS PROPHYLAXIS
     Route: 048
     Dates: start: 20040824, end: 20100220
  4. FOSAMAX (ALENDRONATE SODIUM) [Suspect]
     Indication: OSTEOPOROSIS
     Route: 048
     Dates: start: 19990824, end: 199909
  5. FOSAMAX (ALENDRONATE SODIUM) [Suspect]
     Indication: OSTEOPENIA
     Route: 048
     Dates: start: 19990824, end: 199909
  6. FOSAMAX (ALENDRONATE SODIUM) [Suspect]
     Indication: OSTEOPOROSIS PROPHYLAXIS
     Route: 048
     Dates: start: 19990824, end: 199909
  7. RECLAST [Suspect]
     Indication: OSTEOPOROSIS
     Route: 042
     Dates: start: 201205
  8. RECLAST [Suspect]
     Indication: OSTEOPENIA
     Route: 042
     Dates: start: 201205
  9. RECLAST [Suspect]
     Indication: OSTEOPOROSIS PROPHYLAXIS
     Route: 042
     Dates: start: 201205
  10. HYDROCHLOROTHIAZIDE (HYDROCHLOROTHIAZIDE) [Concomitant]
  11. TOPROL (METOPROLOL SUCCINATE) [Concomitant]
  12. LOTREL (AMLODIPINE BESILATE, BENAZEPRIL HYDROCHLORIDE) [Concomitant]
  13. AVAPRO (IRBESARTAN) [Concomitant]
  14. BENICAR (OLMESARTAN MEDOXOMIL) [Concomitant]
  15. ALBUTEROL/ (SALBUTAMOL) [Concomitant]
  16. CLARITIN/ (LORATADINE) [Concomitant]
  17. DETROL (TOLTERODINE L-TARTRATE) [Concomitant]
  18. VESICARE (SOLIFENACIN SUCCINATE) [Concomitant]
  19. CELEBREX (CELECOXIB) [Concomitant]
  20. MOBIC (MELOXICAM) [Concomitant]
  21. PRILOSEC/(OMEPRAZOLE) [Concomitant]
  22. CYMBALTA (DULOXETINE HYDROCHLORIDE) [Concomitant]
  23. GLUCOSAMINE (GLUCOSAMINE) [Concomitant]
  24. CALTRATE D/ (CALCIUM CARBONATE, COLECALCIFEROL) [Concomitant]
  25. VITAMIN D/(COLECALCIFEROL) [Concomitant]

REACTIONS (9)
  - Pathological fracture [None]
  - Femur fracture [None]
  - Osteoporotic fracture [None]
  - Limb injury [None]
  - Pain in extremity [None]
  - Fall [None]
  - Stress fracture [None]
  - Bone disorder [None]
  - Low turnover osteopathy [None]
